FAERS Safety Report 13455177 (Version 1)
Quarter: 2017Q2

REPORT INFORMATION
  Report Type: Spontaneous
  Country: US (occurrence: US)
  Receive Date: 20170419
  Receipt Date: 20170419
  Transmission Date: 20170830
  Serious: No
  Sender: FDA-Public Use
  Company Number: US-TARO-2016TAR00804

PATIENT
  Sex: Female

DRUGS (1)
  1. HYDROCORTISONE 1% W/ACETIC ACID 2% OTIC SOLUTION USP [Suspect]
     Active Substance: HYDROCORTISONE
     Dosage: UNK, ONCE, OTIC
     Route: 001
     Dates: start: 201609, end: 201609

REACTIONS (3)
  - Burning sensation [Recovered/Resolved]
  - Rash [Recovered/Resolved]
  - Application site pain [Recovered/Resolved]

NARRATIVE: CASE EVENT DATE: 201609
